FAERS Safety Report 7505697-5 (Version None)
Quarter: 2011Q2

REPORT INFORMATION
  Report Type: 
  Country: None (occurrence: None)
  Receive Date: 20110526
  Receipt Date: 20110519
  Transmission Date: 20111010
  Serious: Yes (Other)
  Sender: FDA-Public Use
  Company Number: DE-PFIZER INC-2011108601

PATIENT
  Age: 69 Year
  Sex: Female

DRUGS (1)
  1. XALATAN [Suspect]
     Indication: GLAUCOMA
     Dosage: UNK
     Dates: start: 20000101, end: 20100101

REACTIONS (2)
  - CATARACT [None]
  - VITREOUS DISORDER [None]
